FAERS Safety Report 20667294 (Version 1)
Quarter: 2022Q2

REPORT INFORMATION
  Report Type: Spontaneous
  Country: DE (occurrence: DE)
  Receive Date: 20220404
  Receipt Date: 20220404
  Transmission Date: 20220720
  Serious: Yes (Hospitalization)
  Sender: FDA-Public Use
  Company Number: DE-Albireo AB-2022ALB000047

PATIENT
  Age: 16 Year
  Sex: Male
  Weight: 45.5 kg

DRUGS (1)
  1. BYLVAY [Suspect]
     Active Substance: ODEVIXIBAT
     Indication: Progressive familial intrahepatic cholestasis
     Route: 048
     Dates: start: 20220205

REACTIONS (11)
  - Total bile acids increased [Unknown]
  - Blood bilirubin increased [Unknown]
  - Fatigue [Unknown]
  - Scleral discolouration [Unknown]
  - Depressed mood [Unknown]
  - Malaise [Unknown]
  - Social avoidant behaviour [Unknown]
  - Decreased activity [Unknown]
  - Drug ineffective [Unknown]
  - Adjustment disorder [Unknown]
  - Blood test abnormal [Unknown]
